FAERS Safety Report 9613813 (Version 1)
Quarter: 2013Q4

REPORT INFORMATION
  Report Type: Spontaneous
  Country: US (occurrence: US)
  Receive Date: 20131010
  Receipt Date: 20131010
  Transmission Date: 20140711
  Serious: No
  Sender: FDA-Public Use
  Company Number: US-ALLERGAN-1218383US

PATIENT
  Age: 24 Year
  Sex: Female

DRUGS (2)
  1. MARY KAY MOISTURIZER [Concomitant]
     Indication: THERAPEUTIC SKIN CARE TOPICAL
     Dosage: DF
  2. VANIQA [Suspect]
     Indication: HAIR GROWTH ABNORMAL
     Route: 061
     Dates: start: 201207, end: 20120918

REACTIONS (1)
  - Hair growth abnormal [Not Recovered/Not Resolved]
